FAERS Safety Report 13188411 (Version 1)
Quarter: 2017Q1

REPORT INFORMATION
  Report Type: Spontaneous
  Country: US (occurrence: US)
  Receive Date: 20170206
  Receipt Date: 20170206
  Transmission Date: 20170428
  Serious: Yes (Other)
  Sender: FDA-Public Use
  Company Number: US-NOVOPROD-529786

PATIENT
  Age: 54 Year
  Sex: Female

DRUGS (2)
  1. LEVEMIR [Suspect]
     Active Substance: INSULIN DETEMIR
     Indication: DIABETES MELLITUS
     Dosage: UNKNOWN
     Route: 058
  2. NOVOLOG [Suspect]
     Active Substance: INSULIN ASPART
     Indication: DIABETES MELLITUS
     Dosage: UNKNOWN
     Route: 058

REACTIONS (2)
  - Pain [Recovered/Resolved]
  - Diabetes mellitus inadequate control [Unknown]

NARRATIVE: CASE EVENT DATE: 201604
